FAERS Safety Report 4292534-8 (Version None)
Quarter: 2004Q1

REPORT INFORMATION
  Report Type: 
  Country: None (occurrence: None)
  Receive Date: 20040211
  Receipt Date: 20040211
  Transmission Date: 20041129
  Serious: No
  Sender: FDA-Public Use
  Company Number: None

PATIENT
  Age: 55 Year
  Sex: Male
  Weight: 117.4816 kg

DRUGS (8)
  1. ZETIA [Suspect]
     Indication: CORONARY ARTERY DISEASE
     Dosage: 10 MG QD ORAL
     Route: 048
     Dates: start: 20030226, end: 20030319
  2. ASPIRIN [Concomitant]
  3. ATENOLOL [Concomitant]
  4. GLUCOPHAGE [Concomitant]
  5. GLUCOTROL [Concomitant]
  6. PRAVACHOL [Concomitant]
  7. TAGAMET [Concomitant]
  8. ZESTRIL [Concomitant]

REACTIONS (5)
  - ABDOMINAL PAIN [None]
  - CONDITION AGGRAVATED [None]
  - DYSPEPSIA [None]
  - HAEMATOCHEZIA [None]
  - HAEMORRHOIDS [None]
